FAERS Safety Report 10432729 (Version 5)
Quarter: 2016Q3

REPORT INFORMATION
  Report Type: Spontaneous
  Country: US (occurrence: US)
  Receive Date: 20140905
  Receipt Date: 20160808
  Transmission Date: 20161109
  Serious: Yes (Disabling, Other)
  Sender: FDA-Public Use
  Company Number: US-009507513-1408USA016437

PATIENT
  Sex: Male
  Weight: 60.32 kg

DRUGS (3)
  1. PROPECIA [Suspect]
     Active Substance: FINASTERIDE
     Indication: ALOPECIA
     Dosage: 1 MG, QD
     Route: 048
     Dates: start: 20090818
  2. FINASTERIDE. [Suspect]
     Active Substance: FINASTERIDE
     Indication: ALOPECIA
     Dosage: UNK, UNKNOWN
     Route: 048
  3. PROSCAR [Suspect]
     Active Substance: FINASTERIDE
     Indication: ALOPECIA
     Dosage: UNK, UNKNOWN
     Route: 048

REACTIONS (20)
  - Acne [Not Recovered/Not Resolved]
  - Pain [Unknown]
  - Emotional disorder [Not Recovered/Not Resolved]
  - Libido decreased [Not Recovered/Not Resolved]
  - Rhinitis perennial [Not Recovered/Not Resolved]
  - Ingrown hair [Unknown]
  - Erectile dysfunction [Not Recovered/Not Resolved]
  - Drug administration error [Unknown]
  - Arthralgia [Unknown]
  - Gonorrhoea [Unknown]
  - Chlamydial infection [Unknown]
  - Fatigue [Not Recovered/Not Resolved]
  - Anxiety [Not Recovered/Not Resolved]
  - Incorrect dose administered [Unknown]
  - Nasal septum deviation [Not Recovered/Not Resolved]
  - Anogenital warts [Unknown]
  - Erythema [Unknown]
  - Dysuria [Unknown]
  - Depression [Not Recovered/Not Resolved]
  - Arthritis [Unknown]

NARRATIVE: CASE EVENT DATE: 2010
